FAERS Safety Report 5447098-X (Version None)
Quarter: 2007Q3

REPORT INFORMATION
  Report Type: 
  Country: None (occurrence: None)
  Receive Date: 20070809
  Receipt Date: 20070501
  Transmission Date: 20080115
  Serious: No
  Sender: FDA-Public Use
  Company Number: WAES 0705USA00463

PATIENT
  Age: 44 Year
  Sex: Female

DRUGS (3)
  1. ZOLINZA [Suspect]
     Indication: T-CELL TYPE ACUTE LEUKAEMIA
     Dosage: 400 MG/DAILY/PO
     Route: 048
     Dates: start: 20070401, end: 20070424
  2. ANALGESIC [Concomitant]
  3. ANESTHETIC [Concomitant]

REACTIONS (6)
  - DRY SKIN [None]
  - EJECTION FRACTION DECREASED [None]
  - HYPERKERATOSIS [None]
  - INTENTIONAL DRUG MISUSE [None]
  - OEDEMA PERIPHERAL [None]
  - SKIN EXFOLIATION [None]
